FAERS Safety Report 8790239 (Version 4)
Quarter: 2013Q1

REPORT INFORMATION
  Report Type: Spontaneous
  Country: US (occurrence: US)
  Receive Date: 20120917
  Receipt Date: 20130103
  Transmission Date: 20140127
  Serious: Yes (Hospitalization, Other)
  Sender: FDA-Public Use
  Company Number: US-JNJFOC-20120904876

PATIENT
  Age: 40 None
  Sex: Female

DRUGS (1)
  1. STELARA [Suspect]
     Indication: PSORIASIS
     Dosage: 0.5CC
     Route: 058
     Dates: start: 20120212

REACTIONS (2)
  - Road traffic accident [Recovering/Resolving]
  - Cervical vertebral fracture [Recovering/Resolving]
